FAERS Safety Report 16192252 (Version 1)
Quarter: 2019Q2

REPORT INFORMATION
  Report Type: Report from Study
  Country: ZA (occurrence: ZA)
  Receive Date: 20190412
  Receipt Date: 20190412
  Transmission Date: 20190711
  Serious: Yes (Life-Threatening, Hospitalization)
  Sender: FDA-Public Use
  Company Number: ZA-SA-2019SA101335

PATIENT
  Age: 50 Year
  Sex: Male

DRUGS (4)
  1. NO STUDY DRUG GIVEN [Suspect]
     Active Substance: UNSPECIFIED INGREDIENT
     Dosage: UNK UNK, UNK
  2. ACCORD GLIMEPIRIDE [Concomitant]
     Dosage: 4 MG, QD, BEFORE BREAKFAST
     Route: 065
     Dates: start: 20190312
  3. BIGSENS [Concomitant]
     Active Substance: METFORMIN HYDROCHLORIDE
     Dosage: 1000 MG BEFORE SUPPER AND 1000 MG BEFORE BREAKFAST, BID
     Route: 065
     Dates: start: 20190312
  4. TOUJEO [Suspect]
     Active Substance: INSULIN GLARGINE
     Dosage: 69 U, HS, AT BEDTIME
     Route: 065
     Dates: start: 20190228

REACTIONS (3)
  - Dizziness [Recovered/Resolved]
  - Stent placement [Unknown]
  - Glycosylated haemoglobin increased [Unknown]

NARRATIVE: CASE EVENT DATE: 20190401
